FAERS Safety Report 11296331 (Version 1)
Quarter: 2015Q3

REPORT INFORMATION
  Report Type: Spontaneous
  Country: US (occurrence: US)
  Receive Date: 20150722
  Receipt Date: 20150722
  Transmission Date: 20151125
  Serious: No
  Sender: FDA-Public Use
  Company Number: US-ELI_LILLY_AND_COMPANY-US200911004708

PATIENT
  Age: 56 Year
  Sex: Male

DRUGS (11)
  1. TEMAZEPAM. [Concomitant]
     Active Substance: TEMAZEPAM
  2. EFFIENT [Suspect]
     Active Substance: PRASUGREL HYDROCHLORIDE
     Dosage: 10 MG, DAILY (1/D)
     Route: 048
     Dates: start: 20091107, end: 200911
  3. EFFIENT [Suspect]
     Active Substance: PRASUGREL HYDROCHLORIDE
     Dosage: 5 MG, DAILY (1/D)
     Dates: start: 200911
  4. PLAVIX [Concomitant]
     Active Substance: CLOPIDOGREL BISULFATE
  5. POTASSIUM [Concomitant]
     Active Substance: POTASSIUM
  6. CRESTOR [Concomitant]
     Active Substance: ROSUVASTATIN CALCIUM
  7. FISH OIL [Concomitant]
     Active Substance: FISH OIL
  8. ATENOLOL. [Concomitant]
     Active Substance: ATENOLOL
  9. HALCION [Concomitant]
     Active Substance: TRIAZOLAM
  10. LISINOPRIL. [Concomitant]
     Active Substance: LISINOPRIL
  11. AMBIEN [Concomitant]
     Active Substance: ZOLPIDEM TARTRATE

REACTIONS (2)
  - Intentional product misuse [Unknown]
  - Headache [Recovering/Resolving]

NARRATIVE: CASE EVENT DATE: 200911
